FAERS Safety Report 7302945-1 (Version None)
Quarter: 2011Q1

REPORT INFORMATION
  Report Type: 
  Country: None (occurrence: None)
  Receive Date: 20110218
  Receipt Date: 20110201
  Transmission Date: 20110831
  Serious: Yes (Other)
  Sender: FDA-Public Use
  Company Number: BR-ASTRAZENECA-2011SE05688

PATIENT
  Sex: Male

DRUGS (7)
  1. OMEPRAZOLE [Concomitant]
     Route: 048
  2. LIPITOR [Concomitant]
     Route: 048
  3. ATENOLOL [Suspect]
     Dates: start: 20010101
  4. DIOVAN HCT [Concomitant]
     Dosage: 160/12.5 MGS
     Route: 048
  5. ANCORON [Concomitant]
     Route: 048
  6. ASA [Concomitant]
     Route: 048
  7. RIVOTRIL [Concomitant]
     Route: 048

REACTIONS (2)
  - TACHYARRHYTHMIA [None]
  - MYOCARDIAL INFARCTION [None]
